FAERS Safety Report 7104925-8 (Version None)
Quarter: 2010Q4

REPORT INFORMATION
  Report Type: 
  Country: None (occurrence: None)
  Receive Date: 20101109
  Receipt Date: 20101029
  Transmission Date: 20110411
  Serious: Yes (Disabling)
  Sender: FDA-Public Use
  Company Number: 2010AP002308

PATIENT
  Age: 51 Year
  Sex: Male

DRUGS (2)
  1. CLARITHROMYCIN [Suspect]
     Indication: PNEUMONIA
     Dosage: 500 MG; BID; PO
     Route: 048
     Dates: start: 20100920, end: 20100927
  2. CITALOPRAM (CITALOPRAM) [Concomitant]

REACTIONS (5)
  - ANXIETY [None]
  - DEPRESSION [None]
  - HYPERVENTILATION [None]
  - MENTAL DISORDER [None]
  - PARAESTHESIA [None]
